FAERS Safety Report 5697885-8 (Version None)
Quarter: 2008Q2

REPORT INFORMATION
  Report Type: 
  Country: None (occurrence: None)
  Receive Date: 20080404
  Receipt Date: 20080404
  Transmission Date: 20081010
  Serious: Yes (Other)
  Sender: FDA-Public Use
  Company Number: None

PATIENT
  Age: 43 Year
  Sex: Female

DRUGS (3)
  1. DEPAKOTE [Suspect]
     Dosage: 2000MG PO DAILY
     Route: 048
     Dates: start: 20060529, end: 20060707
  2. RISPERDAL [Concomitant]
  3. FEMHART (ETHINYL ESTRADIOL AND NORETHINDRONE) [Concomitant]

REACTIONS (4)
  - ALANINE AMINOTRANSFERASE INCREASED [None]
  - ANOREXIA [None]
  - ASPARTATE AMINOTRANSFERASE INCREASED [None]
  - LIVER INJURY [None]
